FAERS Safety Report 14234208 (Version 1)
Quarter: 2017Q4

REPORT INFORMATION
  Report Type: Report from Study
  Country: CA (occurrence: CA)
  Receive Date: 20171129
  Receipt Date: 20171129
  Transmission Date: 20180321
  Serious: Yes (Other)
  Sender: FDA-Public Use
  Company Number: PHHY2017CA174858

PATIENT
  Age: 32 Year
  Sex: Female
  Weight: 49.5 kg

DRUGS (1)
  1. TOBI [Suspect]
     Active Substance: TOBRAMYCIN
     Indication: CYSTIC FIBROSIS
     Route: 065

REACTIONS (6)
  - Weight decreased [Unknown]
  - Stenotrophomonas test positive [Unknown]
  - Body mass index decreased [Unknown]
  - Forced expiratory volume decreased [Unknown]
  - Pseudomonas test positive [Unknown]
  - Staphylococcus test positive [Unknown]

NARRATIVE: CASE EVENT DATE: 2017
